FAERS Safety Report 4621931-3 (Version None)
Quarter: 2005Q1

REPORT INFORMATION
  Report Type: 
  Country: None (occurrence: None)
  Receive Date: 20050329
  Receipt Date: 20050323
  Transmission Date: 20050727
  Serious: Yes (Other)
  Sender: FDA-Public Use
  Company Number: PHEH2005US03562

PATIENT
  Sex: Female

DRUGS (1)
  1. TRILEPTAL [Suspect]
     Dosage: 300 MG/ 450 MG
     Dates: start: 20040801

REACTIONS (2)
  - CORNEAL DYSTROPHY [None]
  - THERAPEUTIC RESPONSE UNEXPECTED [None]
